FAERS Safety Report 6256404-8 (Version None)
Quarter: 2009Q3

REPORT INFORMATION
  Report Type: 
  Country: None (occurrence: None)
  Receive Date: 20090706
  Receipt Date: 20090624
  Transmission Date: 20100115
  Serious: Yes (Other)
  Sender: FDA-Public Use
  Company Number: DE-PURDUE-DEU_2009_0005235

PATIENT
  Sex: Female
  Weight: 97 kg

DRUGS (3)
  1. PALLADON RETARD 8 MG [Suspect]
     Indication: PAIN
     Dosage: 8 MG, BID
     Route: 048
     Dates: start: 20080401
  2. CORTISONE [Suspect]
  3. NOVALGIN                           /00039501/ [Concomitant]

REACTIONS (6)
  - BLOOD PRESSURE DECREASED [None]
  - BLOOD PRESSURE INCREASED [None]
  - DECREASED APPETITE [None]
  - HOT FLUSH [None]
  - NAUSEA [None]
  - WEIGHT INCREASED [None]
